FAERS Safety Report 8093409-9 (Version None)
Quarter: 2012Q1

REPORT INFORMATION
  Report Type: 
  Country: None (occurrence: None)
  Receive Date: 20120131
  Receipt Date: 20120120
  Transmission Date: 20120608
  Serious: Yes (Life-Threatening, Hospitalization, Other)
  Sender: FDA-Public Use
  Company Number: GB-TEVA-2011004244

PATIENT
  Sex: Female

DRUGS (1)
  1. BENDAMUSTINE HYDROCHLORIDE POWDER [Suspect]
     Indication: CHRONIC LYMPHOCYTIC LEUKAEMIA
     Dosage: 158 MILLIGRAM;
     Route: 042

REACTIONS (6)
  - DISSEMINATED INTRAVASCULAR COAGULATION [None]
  - MULTI-ORGAN DISORDER [None]
  - HYPERSENSITIVITY [None]
  - ANAPHYLACTIC REACTION [None]
  - RENAL FAILURE ACUTE [None]
  - STEVENS-JOHNSON SYNDROME [None]
